FAERS Safety Report 5794960-4 (Version None)
Quarter: 2008Q2

REPORT INFORMATION
  Report Type: 
  Country: None (occurrence: None)
  Receive Date: 20080627
  Receipt Date: 20080627
  Transmission Date: 20081010
  Serious: Yes (Death)
  Sender: FDA-Public Use
  Company Number: None

PATIENT
  Age: 22 Year
  Sex: Female
  Weight: 83.9154 kg

DRUGS (4)
  1. METHADONE HCL [Suspect]
     Indication: BACK PAIN
     Dosage: 10MG 8 QD PO
     Route: 048
     Dates: start: 20080418, end: 20080420
  2. METHADONE HCL [Suspect]
     Indication: HEADACHE
     Dosage: 10MG 8 QD PO
     Route: 048
     Dates: start: 20080418, end: 20080420
  3. METHADONE HCL [Suspect]
     Indication: NECK PAIN
     Dosage: 10MG 8 QD PO
     Route: 048
     Dates: start: 20080418, end: 20080420
  4. CLONAZEPAM [Suspect]
     Indication: ANXIETY
     Dosage: 2MG 2QD PO
     Route: 048
     Dates: start: 20080403, end: 20080420

REACTIONS (1)
  - OVERDOSE [None]
